FAERS Safety Report 6442428-4 (Version None)
Quarter: 2009Q4

REPORT INFORMATION
  Report Type: 
  Country: None (occurrence: None)
  Receive Date: 20091112
  Receipt Date: 20091102
  Transmission Date: 20100525
  Serious: Yes (Life-Threatening, Other)
  Sender: FDA-Public Use
  Company Number: ADR46622009

PATIENT
  Age: 78 Year
  Sex: Female

DRUGS (6)
  1. SIMVASTATIN [Suspect]
     Indication: HYPERCHOLESTEROLAEMIA
     Dosage: 40 MG, 1/1 DAYS ORAL
     Route: 048
     Dates: start: 20050801, end: 20070130
  2. FUSIDIC ACID [Suspect]
     Dosage: 500 MG
  3. BENDROFLUAZIDE [Concomitant]
  4. DIHYDROCODEINE BITARTRATE INJ [Concomitant]
  5. RANITIDINE [Concomitant]
  6. VERAPAMIL [Concomitant]

REACTIONS (3)
  - DRUG INTERACTION [None]
  - MYOPATHY [None]
  - RHABDOMYOLYSIS [None]
